FAERS Safety Report 5205399-4 (Version None)
Quarter: 2007Q1

REPORT INFORMATION
  Report Type: 
  Country: None (occurrence: None)
  Receive Date: 20070108
  Receipt Date: 20061228
  Transmission Date: 20070707
  Serious: Yes (Hospitalization)
  Sender: FDA-Public Use
  Company Number: 163-20785-07010043

PATIENT
  Age: 74 Year
  Sex: Female

DRUGS (9)
  1. THALOMID [Suspect]
     Indication: MULTIPLE MYELOMA
     Dosage: 400 MG, DIALY, ORAL
     Route: 048
     Dates: start: 20050301, end: 20051201
  2. DIGOXIN [Concomitant]
  3. METOPROLOL TARTRATE [Concomitant]
  4. MEGACE [Concomitant]
  5. COUMADIN [Concomitant]
  6. RENAPHRO (RENAPHRO) (CAPSULES) [Concomitant]
  7. ENAGEL (SEVELAMER HYDROCHLORIDE) [Concomitant]
  8. FOLBEE PLUS (MULTIVITAMINS) [Concomitant]
  9. ASPIRIN [Concomitant]

REACTIONS (7)
  - DEHYDRATION [None]
  - EATING DISORDER [None]
  - INFECTION [None]
  - LUNG INFILTRATION [None]
  - MOUTH HAEMORRHAGE [None]
  - POST PROCEDURAL COMPLICATION [None]
  - TRANSIENT ISCHAEMIC ATTACK [None]
